FAERS Safety Report 4499230-2 (Version None)
Quarter: 2004Q3

REPORT INFORMATION
  Report Type: 
  Country: None (occurrence: None)
  Receive Date: 20040928
  Receipt Date: 20040804
  Transmission Date: 20050211
  Serious: No
  Sender: FDA-Public Use
  Company Number: 04P-163-0269248-00

PATIENT
  Age: 71 Year
  Sex: Female

DRUGS (13)
  1. HUMIRA [Suspect]
     Indication: RHEUMATOID ARTHRITIS
     Dosage: 40 MG, 1 IN 2 WK, SUBCUTANEOUS
     Route: 058
     Dates: start: 20040607
  2. FUROSEMIDE [Concomitant]
  3. POTASSIUM CHLORIDE [Concomitant]
  4. HYDROCHLOROTHIAZIDE [Concomitant]
  5. COUMODIN [Concomitant]
  6. FOLIC ACID [Concomitant]
  7. VERAPAMIL [Concomitant]
  8. IRON [Concomitant]
  9. ROFECOXIB [Concomitant]
  10. SERETIDE MITE [Concomitant]
  11. SINGULAIR [Concomitant]
  12. METHOTREXATE [Concomitant]
  13. RAMIPRIL [Concomitant]

REACTIONS (3)
  - BURNING SENSATION [None]
  - OEDEMA PERIPHERAL [None]
  - PAIN IN EXTREMITY [None]
